FAERS Safety Report 23079632 (Version 1)
Quarter: 2023Q4

REPORT INFORMATION
  Report Type: Spontaneous
  Country: US (occurrence: None)
  Receive Date: 20231017
  Receipt Date: 20231017
  Transmission Date: 20240110
  Serious: Yes (Hospitalization)
  Sender: FDA-Public Use
  Company Number: None

PATIENT
  Age: 80 Year
  Sex: Male

DRUGS (1)
  1. LISINOPRIL [Suspect]
     Active Substance: LISINOPRIL
     Dates: start: 20220719, end: 20220819

REACTIONS (8)
  - Anaphylactic reaction [None]
  - Angioedema [None]
  - Cough [None]
  - Oropharyngeal pain [None]
  - Dysphonia [None]
  - Dysphagia [None]
  - Neck pain [None]
  - Aphasia [None]

NARRATIVE: CASE EVENT DATE: 20220818
